FAERS Safety Report 9553170 (Version 1)
Quarter: 2013Q3

REPORT INFORMATION
  Report Type: Spontaneous
  Country: CA (occurrence: CA)
  Receive Date: 20130925
  Receipt Date: 20130925
  Transmission Date: 20140515
  Serious: Yes (Other)
  Sender: FDA-Public Use
  Company Number: CA-TEVA-433878USA

PATIENT
  Age: 60 Year
  Sex: Female
  Weight: 83.99 kg

DRUGS (3)
  1. TEVA -MYCOPHENOLATE [Suspect]
     Indication: IMMUNOSUPPRESSION
     Dosage: 2000 MILLIGRAM DAILY;
     Route: 048
     Dates: start: 201302
  2. TACROLIMUS [Concomitant]
  3. LEVOTHYROXINE [Concomitant]

REACTIONS (1)
  - Colitis ulcerative [Not Recovered/Not Resolved]
